FAERS Safety Report 6152127-4 (Version None)
Quarter: 2009Q2

REPORT INFORMATION
  Report Type: 
  Country: None (occurrence: None)
  Receive Date: 20090410
  Receipt Date: 20090330
  Transmission Date: 20091009
  Serious: Yes (Disabling, Other)
  Sender: FDA-Public Use
  Company Number: CL-PFIZER INC-2009183889

PATIENT

DRUGS (6)
  1. CHAMPIX [Suspect]
     Indication: SMOKING CESSATION THERAPY
     Dosage: UNK
     Route: 048
  2. TRAMADOL [Concomitant]
     Dosage: UNK
  3. CELEBRA [Concomitant]
     Dosage: UNK
  4. DICLOFENAC [Concomitant]
     Dosage: UNK
  5. PLAQUINOL [Concomitant]
     Dosage: UNK
  6. TIBOLONE [Concomitant]
     Indication: MENOPAUSE
     Dosage: 2.5 MG, UNK

REACTIONS (2)
  - FEELING ABNORMAL [None]
  - FIBROMYALGIA [None]
